FAERS Safety Report 8915331 (Version 3)
Quarter: 2013Q1

REPORT INFORMATION
  Report Type: Spontaneous
  Country: US (occurrence: US)
  Receive Date: 20121116
  Receipt Date: 20130318
  Transmission Date: 20140127
  Serious: Yes (Other)
  Sender: FDA-Public Use
  Company Number: US-CELGENEUS-163-21880-12111723

PATIENT
  Sex: Female

DRUGS (2)
  1. REVLIMID [Suspect]
     Indication: PLASMA CELL MYELOMA
     Dosage: 15 MILLIGRAM
     Route: 048
     Dates: start: 20110520
  2. REVLIMID [Suspect]
     Dosage: 15 MILLIGRAM
     Route: 048
     Dates: start: 20120329

REACTIONS (9)
  - Asthma [Unknown]
  - Respiratory tract infection [Unknown]
  - Dyspepsia [Unknown]
  - Bronchitis [Unknown]
  - Gastric infection [Unknown]
  - Malaise [Recovered/Resolved]
  - Fatigue [Recovering/Resolving]
  - Nausea [Unknown]
  - Vomiting [Unknown]
